FAERS Safety Report 7483824-6 (Version None)
Quarter: 2011Q2

REPORT INFORMATION
  Report Type: 
  Country: None (occurrence: None)
  Receive Date: 20110517
  Receipt Date: 20110405
  Transmission Date: 20111010
  Serious: Yes (Disabling, Other)
  Sender: FDA-Public Use
  Company Number: US-BAYER-201036678NA

PATIENT
  Age: 18 Year
  Sex: Female
  Weight: 45 kg

DRUGS (4)
  1. YASMIN [Suspect]
     Indication: MENSTRUATION IRREGULAR
     Dosage: UNK UNK, QD
     Route: 048
     Dates: start: 20070612, end: 20090901
  2. YAZ [Suspect]
     Indication: MENSTRUATION IRREGULAR
     Dosage: UNK, QD
     Route: 048
     Dates: start: 20070612, end: 20090901
  3. VICODIN [Concomitant]
     Route: 048
  4. NORTRIPTYLINE HCL [Concomitant]
     Dosage: 10 MG, UNK
     Route: 048
     Dates: start: 20080715

REACTIONS (4)
  - COELIAC ARTERY COMPRESSION SYNDROME [None]
  - WEIGHT DECREASED [None]
  - DIARRHOEA [None]
  - CHOLELITHIASIS [None]
